FAERS Safety Report 10967325 (Version 1)
Quarter: 2015Q1

REPORT INFORMATION
  Report Type: Spontaneous
  Country: IE (occurrence: IE)
  Receive Date: 20150330
  Receipt Date: 20150330
  Transmission Date: 20150721
  Serious: Yes (Other)
  Sender: FDA-Public Use
  Company Number: IE-TEVA-549956ISR

PATIENT
  Sex: Male

DRUGS (1)
  1. MONTELUKAST TEVA [Suspect]
     Active Substance: MONTELUKAST SODIUM
     Indication: ASTHMA
     Dosage: 10 MILLIGRAM DAILY;
     Route: 048
     Dates: start: 201412, end: 20150302

REACTIONS (4)
  - Muscular weakness [Not Recovered/Not Resolved]
  - Peripheral swelling [Not Recovered/Not Resolved]
  - Somnolence [Not Recovered/Not Resolved]
  - Product substitution issue [Unknown]
